FAERS Safety Report 20167310 (Version 1)
Quarter: 2021Q4

REPORT INFORMATION
  Report Type: Spontaneous
  Country: US (occurrence: None)
  Receive Date: 20211208
  Receipt Date: 20211208
  Transmission Date: 20220303
  Serious: Yes (Other)
  Sender: FDA-Public Use
  Company Number: None

PATIENT
  Age: 80 Year
  Sex: Male
  Weight: 90 kg

DRUGS (2)
  1. CASIRIVIMAB\IMDEVIMAB [Suspect]
     Active Substance: CASIRIVIMAB\IMDEVIMAB
     Indication: SARS-CoV-2 test positive
     Dosage: OTHER FREQUENCY : ONCE;?
     Route: 042
     Dates: start: 20211203, end: 20211203
  2. SODIUM CHLORIDE [Concomitant]
     Active Substance: SODIUM CHLORIDE
     Dates: start: 20211203, end: 20211203

REACTIONS (1)
  - Blood pressure decreased [None]

NARRATIVE: CASE EVENT DATE: 20211203
